FAERS Safety Report 25262632 (Version 1)
Quarter: 2025Q2

REPORT INFORMATION
  Report Type: Spontaneous
  Country: LK (occurrence: LK)
  Receive Date: 20250502
  Receipt Date: 20250502
  Transmission Date: 20250716
  Serious: No
  Sender: ALKEM
  Company Number: LK-ALKEM LABORATORIES LIMITED-LK-ALKEM-2024-20622

PATIENT

DRUGS (2)
  1. LIDOCAINE [Suspect]
     Active Substance: LIDOCAINE
     Indication: Cervical plexus block
     Route: 042
  2. BUPIVACAINE [Suspect]
     Active Substance: BUPIVACAINE
     Indication: Cervical plexus block
     Route: 042

REACTIONS (1)
  - Dysphonia [Unknown]
